FAERS Safety Report 24394843 (Version 2)
Quarter: 2024Q4

REPORT INFORMATION
  Report Type: Spontaneous
  Country: US (occurrence: US)
  Receive Date: 20241004
  Receipt Date: 20241128
  Transmission Date: 20250114
  Serious: Yes (Other)
  Sender: BIOCODEX
  Company Number: US-BIOCODEX2-2024001243

PATIENT
  Age: 1 Year
  Sex: Female
  Weight: 11 kg

DRUGS (2)
  1. DIACOMIT [Suspect]
     Active Substance: STIRIPENTOL
     Indication: Severe myoclonic epilepsy of infancy
     Dosage: DAY 1-7: TAKE ONE 250MG POWDER FOR SUSPENSION PACKET DISSOLVED IN 25ML OF WATER BY MOUTH, ONCE DAILY
     Route: 048
  2. DIACOMIT [Suspect]
     Active Substance: STIRIPENTOL
     Indication: Severe myoclonic epilepsy of infancy
     Dosage: DAYS 8- TAKE ONE 250MG POWDER FOR SUSPENSION PACKET DISSOLVED IN 25ML OF WATER BY MOUTH, TWICE DAILY
     Route: 048
     Dates: start: 20240831

REACTIONS (5)
  - Seizure [Unknown]
  - Rash [Unknown]
  - Hypersomnia [Unknown]
  - Product preparation issue [Unknown]
  - Off label use [Unknown]

NARRATIVE: CASE EVENT DATE: 20240801
